FAERS Safety Report 10047731 (Version 2)
Quarter: 2014Q1

REPORT INFORMATION
  Report Type: Spontaneous
  Country: GB (occurrence: GB)
  Receive Date: 20140331
  Receipt Date: 20140331
  Transmission Date: 20141002
  Serious: Yes (Hospitalization)
  Sender: FDA-Public Use
  Company Number: GB-UCBSA-115763

PATIENT
  Sex: Female

DRUGS (2)
  1. CIMZIA [Suspect]
     Route: 058
     Dates: start: 201010
  2. METHOTREXATE [Concomitant]

REACTIONS (3)
  - Arthritis [Unknown]
  - Osteoporosis [Unknown]
  - Phlebitis superficial [Not Recovered/Not Resolved]
